FAERS Safety Report 21048819 (Version 1)
Quarter: 2022Q3

REPORT INFORMATION
  Report Type: Spontaneous
  Country: US (occurrence: None)
  Receive Date: 20220706
  Receipt Date: 20220706
  Transmission Date: 20221027
  Serious: Yes (Life-Threatening, Disabling)
  Sender: FDA-Public Use
  Company Number: None

PATIENT

DRUGS (6)
  1. TIZANIDINE [Suspect]
     Active Substance: TIZANIDINE
  2. METOPROLOL [Suspect]
     Active Substance: METOPROLOL
  3. TRAMADOL [Suspect]
     Active Substance: TRAMADOL
  4. VALSARTAN [Suspect]
     Active Substance: VALSARTAN
  5. DOXAZOSIN [Suspect]
     Active Substance: DOXAZOSIN MESYLATE
  6. PLAVIX [Suspect]
     Active Substance: CLOPIDOGREL BISULFATE

REACTIONS (6)
  - Hallucination [None]
  - Dizziness [None]
  - Eye pain [None]
  - Eye colour change [None]
  - Headache [None]
  - Cerebrovascular accident [None]

NARRATIVE: CASE EVENT DATE: 20210401
